FAERS Safety Report 13676274 (Version 2)
Quarter: 2018Q2

REPORT INFORMATION
  Report Type: Spontaneous
  Country: US (occurrence: US)
  Receive Date: 20170622
  Receipt Date: 20180608
  Transmission Date: 20180711
  Serious: Yes (Life-Threatening, Other)
  Sender: FDA-Public Use
  Company Number: US-ASTRAZENECA-2017SE63753

PATIENT
  Age: 68 Year
  Sex: Female
  Weight: 104.3 kg

DRUGS (44)
  1. NEXIUM [Suspect]
     Active Substance: ESOMEPRAZOLE MAGNESIUM
     Indication: GASTROOESOPHAGEAL REFLUX DISEASE
     Dosage: 40.0MG UNKNOWN
     Route: 048
     Dates: start: 20071225
  2. ZANTAC [Concomitant]
     Active Substance: RANITIDINE HYDROCHLORIDE
     Indication: GASTROOESOPHAGEAL REFLUX DISEASE
     Dosage: 150 MG
  3. CELEBREX [Concomitant]
     Active Substance: CELECOXIB
     Indication: ARTHRALGIA
  4. KEFLEX [Concomitant]
     Active Substance: CEPHALEXIN
  5. LIDEX [Concomitant]
     Active Substance: FLUOCINONIDE
  6. MELOXICAM. [Concomitant]
     Active Substance: MELOXICAM
  7. OXYCODONE [Concomitant]
     Active Substance: OXYCODONE
  8. ACETAMINOPHEN. [Concomitant]
     Active Substance: ACETAMINOPHEN
  9. ASPIRIN. [Concomitant]
     Active Substance: ASPIRIN
  10. FLAGYL [Concomitant]
     Active Substance: METRONIDAZOLE\METRONIDAZOLE HYDROCHLORIDE
  11. LEVSIN [Concomitant]
     Active Substance: HYOSCYAMINE SULFATE
  12. HYDROCHLOROTHIAZIDE. [Concomitant]
     Active Substance: HYDROCHLOROTHIAZIDE
  13. BUMETANIDE. [Concomitant]
     Active Substance: BUMETANIDE
  14. CLARITHROMYCIN. [Concomitant]
     Active Substance: CLARITHROMYCIN
  15. METAXALONE. [Concomitant]
     Active Substance: METAXALONE
  16. RANITIDINE. [Suspect]
     Active Substance: RANITIDINE
     Indication: GASTROOESOPHAGEAL REFLUX DISEASE
     Dosage: 150 MG
     Route: 065
     Dates: start: 2013, end: 2014
  17. VITAMIN D [Concomitant]
     Active Substance: CHOLECALCIFEROL
     Indication: HYPERSENSITIVITY
  18. METHYLPREDNISOLONE. [Concomitant]
     Active Substance: METHYLPREDNISOLONE
  19. COLCHICINE. [Concomitant]
     Active Substance: COLCHICINE
  20. SULFAMETHOXAZOLE [Concomitant]
     Active Substance: SULFAMETHOXAZOLE
  21. TRIMETHOPRIM. [Concomitant]
     Active Substance: TRIMETHOPRIM
  22. PRILOSEC [Suspect]
     Active Substance: OMEPRAZOLE MAGNESIUM
     Route: 048
  23. PREVACID [Suspect]
     Active Substance: LANSOPRAZOLE
     Route: 065
  24. TYLENOL [Concomitant]
     Active Substance: ACETAMINOPHEN
     Indication: PAIN
  25. CLINDAMYCIN. [Concomitant]
     Active Substance: CLINDAMYCIN
  26. NEXIUM 24HR [Suspect]
     Active Substance: ESOMEPRAZOLE MAGNESIUM
     Route: 048
  27. ULTRAM [Concomitant]
     Active Substance: TRAMADOL HYDROCHLORIDE
     Indication: ARTHRALGIA
  28. PREDNISONE. [Concomitant]
     Active Substance: PREDNISONE
  29. AZITHROMYCIN ANHYDROUS. [Concomitant]
     Active Substance: AZITHROMYCIN ANHYDROUS
  30. DOXYCYCLINE. [Concomitant]
     Active Substance: DOXYCYCLINE
  31. NEXIUM [Suspect]
     Active Substance: ESOMEPRAZOLE MAGNESIUM
     Indication: GASTRIC PH DECREASED
     Dosage: 40.0MG UNKNOWN
     Route: 048
     Dates: start: 20071225
  32. DEXILANT [Suspect]
     Active Substance: DEXLANSOPRAZOLE
     Route: 065
     Dates: start: 2017
  33. NEXIUM [Suspect]
     Active Substance: ESOMEPRAZOLE MAGNESIUM
     Indication: GASTRIC PH DECREASED
     Route: 048
     Dates: start: 2009, end: 2014
  34. NEXIUM [Suspect]
     Active Substance: ESOMEPRAZOLE MAGNESIUM
     Indication: GASTRIC PH DECREASED
     Dosage: 40.0MG UNKNOWN
     Route: 048
     Dates: start: 2010, end: 2015
  35. NEXIUM [Suspect]
     Active Substance: ESOMEPRAZOLE MAGNESIUM
     Indication: GASTROOESOPHAGEAL REFLUX DISEASE
     Dosage: 40.0MG UNKNOWN
     Route: 048
     Dates: start: 2010, end: 2015
  36. PROTONIX [Suspect]
     Active Substance: PANTOPRAZOLE SODIUM
     Route: 065
  37. PEPCID OTC [Concomitant]
  38. SYNTHROID [Concomitant]
     Active Substance: LEVOTHYROXINE SODIUM
  39. HYDROCORTISONE. [Concomitant]
     Active Substance: HYDROCORTISONE
  40. NEXIUM [Suspect]
     Active Substance: ESOMEPRAZOLE MAGNESIUM
     Indication: GASTROOESOPHAGEAL REFLUX DISEASE
     Route: 048
     Dates: start: 2009, end: 2014
  41. ZEGERID [Suspect]
     Active Substance: OMEPRAZOLE\SODIUM BICARBONATE
     Route: 065
  42. BENADRYL [Concomitant]
     Active Substance: DIPHENHYDRAMINE HYDROCHLORIDE
     Indication: HYPERSENSITIVITY
  43. ZITHROMAX [Concomitant]
     Active Substance: AZITHROMYCIN DIHYDRATE
  44. FUROSEMIDE. [Concomitant]
     Active Substance: FUROSEMIDE

REACTIONS (24)
  - End stage renal disease [Unknown]
  - Congenital renal disorder [Unknown]
  - Hypokalaemia [Unknown]
  - Constipation [Unknown]
  - Tubulointerstitial nephritis [Unknown]
  - Obesity [Unknown]
  - Sarcoidosis [Unknown]
  - Acute kidney injury [Unknown]
  - Gout [Unknown]
  - Hypertension [Unknown]
  - Kidney infection [Unknown]
  - Nephrocalcinosis [Unknown]
  - Toxoplasmosis [Unknown]
  - Granulomatosis with polyangiitis [Unknown]
  - Renal failure [Unknown]
  - Rhabdomyolysis [Unknown]
  - Urethral stenosis [Unknown]
  - Chronic kidney disease [Unknown]
  - Kawasaki^s disease [Unknown]
  - Nephrotic syndrome [Unknown]
  - Renal impairment [Unknown]
  - Pyelonephritis [Unknown]
  - Hypocalcaemia [Unknown]
  - Hypomagnesaemia [Unknown]

NARRATIVE: CASE EVENT DATE: 2012
